FAERS Safety Report 16658716 (Version 1)
Quarter: 2019Q3

REPORT INFORMATION
  Report Type: Spontaneous
  Country: US (occurrence: US)
  Receive Date: 20190801
  Receipt Date: 20190801
  Transmission Date: 20191004
  Serious: No
  Sender: FDA-Public Use
  Company Number: US-GE HEALTHCARE LIFE SCIENCES-2019CSU000991

PATIENT
  Age: 47 Year
  Sex: Male

DRUGS (2)
  1. OMNIPAQUE [Suspect]
     Active Substance: IOHEXOL
     Indication: EPIDURAL ANALGESIA
     Dosage: 1 ML, SINGLE
     Route: 008
     Dates: start: 2014, end: 2014
  2. OMNIPAQUE [Suspect]
     Active Substance: IOHEXOL
     Indication: PAIN

REACTIONS (2)
  - Urticaria [Unknown]
  - Off label use [Recovered/Resolved]

NARRATIVE: CASE EVENT DATE: 2014
